FAERS Safety Report 9463646 (Version 1)
Quarter: 2013Q3

REPORT INFORMATION
  Report Type: Report from Study
  Country: US (occurrence: US)
  Receive Date: 20130819
  Receipt Date: 20130819
  Transmission Date: 20140515
  Serious: Yes (Hospitalization)
  Sender: FDA-Public Use
  Company Number: PHEH2013US017413

PATIENT
  Sex: Male
  Weight: 17.46 kg

DRUGS (1)
  1. TOBI [Suspect]
     Dosage: UNK UKN, UNK

REACTIONS (2)
  - Pneumonia [Unknown]
  - Drug administered to patient of inappropriate age [Unknown]
